FAERS Safety Report 9549860 (Version 1)
Quarter: 2013Q3

REPORT INFORMATION
  Report Type: Spontaneous
  Country: GB (occurrence: GB)
  Receive Date: 20130924
  Receipt Date: 20130924
  Transmission Date: 20140515
  Serious: Yes (Hospitalization)
  Sender: FDA-Public Use
  Company Number: GB-MYLANLABS-2013S1020665

PATIENT
  Age: 42 Year
  Sex: Male

DRUGS (1)
  1. AMITRIPTYLINE [Suspect]
     Indication: SUBSTANCE USE
     Route: 048

REACTIONS (3)
  - Depressed level of consciousness [Recovered/Resolved]
  - Toxicity to various agents [Recovered/Resolved]
  - Substance use [Recovered/Resolved]
